FAERS Safety Report 6109522-9 (Version None)
Quarter: 2009Q1

REPORT INFORMATION
  Report Type: 
  Country: None (occurrence: None)
  Receive Date: 20090310
  Receipt Date: 20090305
  Transmission Date: 20090719
  Serious: Yes (Other)
  Sender: FDA-Public Use
  Company Number: SE-ABBOTT-09P-150-0559999-00

PATIENT
  Age: 68 Year
  Sex: Female

DRUGS (3)
  1. KLACID TABLETS [Suspect]
     Indication: DYSPEPSIA
     Route: 048
     Dates: start: 20051210, end: 20051214
  2. ESOMEPRAZOLE [Suspect]
     Indication: DYSPEPSIA
     Route: 048
     Dates: start: 20051210, end: 20051214
  3. AMOXICILLIN [Suspect]
     Indication: DYSPEPSIA
     Route: 048
     Dates: start: 20051210, end: 20051214

REACTIONS (4)
  - ANGIOEDEMA [None]
  - FEELING HOT [None]
  - OEDEMA MOUTH [None]
  - PHARYNGEAL OEDEMA [None]
